FAERS Safety Report 9838367 (Version 1)
Quarter: 2014Q1

REPORT INFORMATION
  Report Type: Spontaneous
  Country: IN (occurrence: IN)
  Receive Date: 20140123
  Receipt Date: 20140123
  Transmission Date: 20141002
  Serious: Yes (Hospitalization)
  Sender: FDA-Public Use
  Company Number: IN-GLAXOSMITHKLINE-B0962576A

PATIENT
  Age: 58 Year
  Sex: Female

DRUGS (7)
  1. FONDAPARINUX [Suspect]
     Indication: ACUTE MYOCARDIAL INFARCTION
     Dosage: 2.5MG PER DAY
     Route: 058
  2. MORPHINE [Concomitant]
     Indication: ACUTE MYOCARDIAL INFARCTION
     Route: 065
  3. BETA BLOCKER [Concomitant]
     Indication: ACUTE MYOCARDIAL INFARCTION
     Route: 065
  4. ACE INHIBITOR [Concomitant]
     Indication: ACUTE MYOCARDIAL INFARCTION
     Route: 065
  5. STATINS [Concomitant]
     Indication: ACUTE MYOCARDIAL INFARCTION
     Route: 065
  6. ASPIRIN [Concomitant]
     Indication: ACUTE MYOCARDIAL INFARCTION
     Route: 065
  7. CLOPIDOGREL [Concomitant]
     Indication: ACUTE MYOCARDIAL INFARCTION
     Route: 065

REACTIONS (6)
  - Haemorrhage [Recovered/Resolved]
  - Purpura [Unknown]
  - Ecchymosis [Unknown]
  - Epistaxis [Unknown]
  - Haematuria [Unknown]
  - Vaginal haemorrhage [Unknown]
